FAERS Safety Report 25052350 (Version 1)
Quarter: 2025Q1

REPORT INFORMATION
  Report Type: Spontaneous
  Country: FR (occurrence: FR)
  Receive Date: 20250307
  Receipt Date: 20250307
  Transmission Date: 20250408
  Serious: Yes (Life-Threatening)
  Sender: MERCK SHARP & DOHME LLC
  Company Number: None

PATIENT
  Age: 60 Year
  Sex: Female
  Weight: 56 kg

DRUGS (1)
  1. KEYTRUDA [Suspect]
     Active Substance: PEMBROLIZUMAB
     Indication: Squamous cell carcinoma of the cervix
     Route: 042
     Dates: start: 20240712, end: 202411

REACTIONS (2)
  - Adrenal insufficiency [Recovered/Resolved with Sequelae]
  - Myocarditis [Recovered/Resolved with Sequelae]

NARRATIVE: CASE EVENT DATE: 20241127
